FAERS Safety Report 5953649-9 (Version None)
Quarter: 2008Q4

REPORT INFORMATION
  Report Type: 
  Country: None (occurrence: None)
  Receive Date: 20081114
  Receipt Date: 20081031
  Transmission Date: 20090506
  Serious: Yes (Other)
  Sender: FDA-Public Use
  Company Number: B0545368A

PATIENT
  Age: 31 Year
  Sex: Female

DRUGS (8)
  1. TRIZIVIR [Suspect]
     Indication: HIV INFECTION
     Route: 048
     Dates: start: 20040427, end: 20040611
  2. COMBIVIR [Suspect]
     Indication: HIV INFECTION
     Route: 048
     Dates: start: 20041015
  3. TELZIR [Suspect]
     Indication: HIV INFECTION
     Route: 048
     Dates: start: 20041015
  4. NORVIR [Suspect]
     Indication: HIV INFECTION
     Route: 048
     Dates: start: 20041015
  5. INVIRASE [Suspect]
     Indication: HIV INFECTION
     Route: 048
     Dates: start: 20071206
  6. VIREAD [Concomitant]
     Indication: HIV INFECTION
     Route: 048
     Dates: start: 20041208
  7. PENTACARINAT [Concomitant]
     Indication: DRUG USE FOR UNKNOWN INDICATION
     Route: 048
     Dates: start: 20040709
  8. HEPSERA [Concomitant]
     Indication: HIV INFECTION
     Route: 048
     Dates: start: 20040427

REACTIONS (3)
  - ADVERSE EVENT [None]
  - GASTROINTESTINAL DISORDER [None]
  - HEPATOTOXICITY [None]
